FAERS Safety Report 10187133 (Version 1)
Quarter: 2014Q2

REPORT INFORMATION
  Report Type: Not Available
  Country: US (occurrence: US)
  Receive Date: 20140522
  Receipt Date: 20140522
  Transmission Date: 20141212
  Serious: No
  Sender: FDA-Public Use
  Company Number: US-LUPIN PHARMACEUTICALS INC.-2014-01027

PATIENT
  Age: 81 Year
  Sex: Female

DRUGS (4)
  1. AMLODIPINE BESYLATE AND BENAZEPRIL HYDROCHLORIDE CAPSULES 5MG/10MG [Suspect]
     Indication: HYPERTENSION
     Dates: start: 201403, end: 20140327
  2. LEVOTHYROXINE [Concomitant]
     Indication: HYPOTHYROIDISM
  3. LIPITOR [Concomitant]
     Indication: HYPERCHOLESTEROLAEMIA
  4. CHLORTHALIDONE [Concomitant]
     Indication: DIURETIC THERAPY

REACTIONS (3)
  - Balance disorder [Not Recovered/Not Resolved]
  - Dizziness [Not Recovered/Not Resolved]
  - Product taste abnormal [Unknown]
